FAERS Safety Report 17282223 (Version 2)
Quarter: 2020Q1

REPORT INFORMATION
  Report Type: Spontaneous
  Country: US (occurrence: US)
  Receive Date: 20200117
  Receipt Date: 20200331
  Transmission Date: 20200409
  Serious: No
  Sender: FDA-Public Use
  Company Number: US-ASTRAZENECA-2020SE04806

PATIENT
  Age: 5 Month
  Sex: Female
  Weight: 4.5 kg

DRUGS (4)
  1. POLYVITAMIN [Concomitant]
     Active Substance: VITAMINS
  2. SYNAGIS [Suspect]
     Active Substance: PALIVIZUMAB
     Indication: ANTIVIRAL PROPHYLAXIS
     Route: 030
  3. VITAMON D [Concomitant]
  4. IRON [Concomitant]
     Active Substance: IRON

REACTIONS (3)
  - Influenza [Unknown]
  - Nasopharyngitis [Unknown]
  - Cough [Unknown]

NARRATIVE: CASE EVENT DATE: 201912
